FAERS Safety Report 7328630-8 (Version None)
Quarter: 2011Q1

REPORT INFORMATION
  Report Type: 
  Country: None (occurrence: None)
  Receive Date: 20110225
  Receipt Date: 20110225
  Transmission Date: 20110831
  Serious: Yes (Life-Threatening)
  Sender: FDA-Public Use
  Company Number: None

PATIENT
  Sex: Male
  Weight: 90 kg

DRUGS (2)
  1. DISULFIRAM [Suspect]
     Indication: ALCOHOL ABUSE
     Dates: start: 20101101, end: 20101201
  2. DISULFIRAM [Suspect]
     Indication: PROPHYLAXIS
     Dates: start: 20101101, end: 20101201

REACTIONS (1)
  - HEPATITIS ACUTE [None]
